FAERS Safety Report 24133770 (Version 2)
Quarter: 2024Q3

REPORT INFORMATION
  Report Type: Spontaneous
  Country: US (occurrence: US)
  Receive Date: 20240724
  Receipt Date: 20240725
  Transmission Date: 20241017
  Serious: No
  Sender: PURDUE
  Company Number: US-PURDUE-USA-2024-0310908

PATIENT
  Sex: Female

DRUGS (2)
  1. DRONABINOL [Suspect]
     Active Substance: DRONABINOL
     Indication: Nausea
     Dosage: 5 MILLIGRAM, BID (2 TIMES A DAY)
     Route: 048
  2. DRONABINOL [Suspect]
     Active Substance: DRONABINOL
     Indication: Vomiting

REACTIONS (1)
  - Therapeutic product effect decreased [Unknown]
